FAERS Safety Report 11655997 (Version 3)
Quarter: 2016Q3

REPORT INFORMATION
  Report Type: Report from Study
  Country: US (occurrence: US)
  Receive Date: 20151023
  Receipt Date: 20160727
  Transmission Date: 20161109
  Serious: Yes (Other)
  Sender: FDA-Public Use
  Company Number: US-ACTELION-A-NJ2015-125899

PATIENT
  Age: 48 Year
  Sex: Female

DRUGS (3)
  1. VELETRI [Suspect]
     Active Substance: EPOPROSTENOL
     Dosage: 65 NG/KG, PER MIN
     Route: 042
  2. OPSUMIT [Concomitant]
     Active Substance: MACITENTAN
     Route: 048
  3. VELETRI [Suspect]
     Active Substance: EPOPROSTENOL
     Indication: PULMONARY ARTERIAL HYPERTENSION
     Dosage: 55 NG/KG, PER MIN
     Route: 042
     Dates: start: 20141008

REACTIONS (7)
  - Nausea [Unknown]
  - Dyspnoea exertional [Unknown]
  - Dialysis [Unknown]
  - Device issue [Unknown]
  - Palpitations [Unknown]
  - Fluid retention [Unknown]
  - Localised infection [Unknown]
